FAERS Safety Report 11052259 (Version 1)
Quarter: 2015Q2

REPORT INFORMATION
  Report Type: Spontaneous
  Country: GB (occurrence: GB)
  Receive Date: 20150421
  Receipt Date: 20150421
  Transmission Date: 20150821
  Serious: Yes (Hospitalization, Other)
  Sender: FDA-Public Use
  Company Number: GB-PFIZER INC-2015056052

PATIENT
  Age: 56 Year
  Sex: Female

DRUGS (2)
  1. PREMIQUE LOW DOSE [Suspect]
     Active Substance: ESTROGENS, CONJUGATED\MEDROXYPROGESTERONE ACETATE
     Dosage: UNK
  2. ESTROGENS, CONJUGATED AND MEDROXYPROGESTERONE ACETATE [Suspect]
     Active Substance: ESTROGENS, CONJUGATED\MEDROXYPROGESTERONE ACETATE

REACTIONS (9)
  - Uterine disorder [Unknown]
  - Nausea [Unknown]
  - Cervix disorder [Unknown]
  - Rash [Unknown]
  - Diarrhoea [Unknown]
  - Pruritus [Unknown]
  - Muscle spasms [Unknown]
  - Vaginal haemorrhage [Unknown]
  - Drug dispensing error [Unknown]

NARRATIVE: CASE EVENT DATE: 2013
